FAERS Safety Report 7238118-0 (Version None)
Quarter: 2011Q1

REPORT INFORMATION
  Report Type: 
  Country: None (occurrence: None)
  Receive Date: 20110121
  Receipt Date: 20110108
  Transmission Date: 20110831
  Serious: Yes (Hospitalization)
  Sender: FDA-Public Use
  Company Number: IT-ELI_LILLY_AND_COMPANY-IT201101002029

PATIENT
  Sex: Male

DRUGS (3)
  1. XERISTAR [Suspect]
     Indication: DEPRESSION
     Dosage: 1 D/F, DAILY (1/D)
     Route: 048
     Dates: start: 20101108, end: 20101110
  2. LIORESAL [Concomitant]
     Dosage: 75 MG, UNK
     Route: 048
  3. TAVOR [Concomitant]
     Dosage: 1 MG, UNK
     Route: 048

REACTIONS (4)
  - JAUNDICE [None]
  - CHROMATURIA [None]
  - PALLOR [None]
  - ASTHENIA [None]
